FAERS Safety Report 5203916-1 (Version None)
Quarter: 2006Q4

REPORT INFORMATION
  Report Type: 
  Country: None (occurrence: None)
  Receive Date: 20061016
  Receipt Date: 20060531
  Transmission Date: 20070319
  Serious: Yes (Other)
  Sender: FDA-Public Use
  Company Number: 2006072064

PATIENT
  Age: 64 Year
  Sex: Female
  Weight: 63.5036 kg

DRUGS (5)
  1. NEURONTIN [Suspect]
     Indication: STRESS
     Dosage: 600 MG (200 MG, 3 IN 1 D)
     Dates: start: 20060401
  2. RISPERDAL [Concomitant]
  3. DIOVAN (VALSARTAN) ^NOVARTIS^ [Concomitant]
  4. VERAPAMIL [Concomitant]
  5. CLONIDINE [Concomitant]

REACTIONS (3)
  - FLUID RETENTION [None]
  - HYPOTENSION [None]
  - SCAR [None]
